FAERS Safety Report 21472091 (Version 1)
Quarter: 2022Q4

REPORT INFORMATION
  Report Type: Spontaneous
  Country: US (occurrence: US)
  Receive Date: 20221018
  Receipt Date: 20221018
  Transmission Date: 20230113
  Serious: Yes (Other)
  Sender: FDA-Public Use
  Company Number: US-BIOVITRUM-2022US11872

PATIENT
  Sex: Male
  Weight: 5 kg

DRUGS (3)
  1. SYNAGIS [Suspect]
     Active Substance: PALIVIZUMAB
     Indication: Laryngomalacia
     Dates: start: 20221004
  2. SYNAGIS [Suspect]
     Active Substance: PALIVIZUMAB
     Indication: Sex chromosome abnormality
  3. SYNAGIS [Suspect]
     Active Substance: PALIVIZUMAB
     Indication: Cleft lip

REACTIONS (1)
  - Seizure [Unknown]
